FAERS Safety Report 6222552-1 (Version None)
Quarter: 2009Q2

REPORT INFORMATION
  Report Type: 
  Country: None (occurrence: None)
  Receive Date: 20090611
  Receipt Date: 20090603
  Transmission Date: 20091009
  Serious: Yes (Other)
  Sender: FDA-Public Use
  Company Number: SE-JNJFOC-20090204023

PATIENT
  Age: 7 Decade
  Sex: Female

DRUGS (6)
  1. CAELYX [Suspect]
     Dosage: 6TH TREATMENT
     Route: 042
  2. CAELYX [Suspect]
     Route: 042
  3. CAELYX [Suspect]
     Route: 042
  4. CAELYX [Suspect]
     Indication: OVARIAN CANCER RECURRENT
     Dosage: 40 MG/M2
     Route: 042
  5. BETAPRED [Concomitant]
     Indication: PREMEDICATION
     Route: 050
  6. NAVOBAN [Concomitant]
     Indication: PREMEDICATION
     Route: 050

REACTIONS (7)
  - ERYTHEMA [None]
  - OEDEMA PERIPHERAL [None]
  - PAIN IN EXTREMITY [None]
  - RASH [None]
  - RASH PUSTULAR [None]
  - SKIN DISORDER [None]
  - SKIN FISSURES [None]
